FAERS Safety Report 8776199 (Version 2)
Quarter: 2012Q4

REPORT INFORMATION
  Report Type: 
  Country: JP (occurrence: JP)
  Receive Date: 20120910
  Receipt Date: 20120921
  Transmission Date: 20130627
  Serious: Yes (Other)
  Sender: FDA-Public Use
  Company Number: JP-PFIZER INC-2012222000

PATIENT
  Age: 62 Year
  Sex: Female

DRUGS (4)
  1. LYRICA [Suspect]
     Indication: COMPLEX REGIONAL PAIN SYNDROME
     Dosage: UNK
     Route: 048
     Dates: start: 201107
  2. LYRICA [Suspect]
     Dosage: 150 mg, daily
     Route: 048
  3. LYRICA [Suspect]
     Dosage: 300 mg, daily
     Route: 048
     Dates: end: 201112
  4. LYRICA [Suspect]
     Dosage: 200 mg, daily
     Route: 048
     Dates: start: 201112

REACTIONS (3)
  - Deafness [Unknown]
  - Tinnitus [Unknown]
  - Vertigo [Unknown]
